FAERS Safety Report 7637092-2 (Version None)
Quarter: 2011Q3

REPORT INFORMATION
  Report Type: 
  Country: None (occurrence: None)
  Receive Date: 20110726
  Receipt Date: 20110720
  Transmission Date: 20111222
  Serious: Yes (Hospitalization, Other)
  Sender: FDA-Public Use
  Company Number: CA-ABBOTT-11P-028-0840850-00

PATIENT
  Sex: Male
  Weight: 74.91 kg

DRUGS (1)
  1. LUPRON DEPOT [Suspect]
     Indication: PROSTATE CANCER
     Dosage: 4 MONTH DEPOT
     Dates: start: 20100419

REACTIONS (8)
  - ASTHENIA [None]
  - MALAISE [None]
  - RECTAL HAEMORRHAGE [None]
  - ANAEMIA [None]
  - FATIGUE [None]
  - COLON CANCER [None]
  - WEIGHT DECREASED [None]
  - DIZZINESS [None]
